FAERS Safety Report 9981236 (Version 1)
Quarter: 2014Q1

REPORT INFORMATION
  Report Type: Spontaneous
  Country: AU (occurrence: None)
  Receive Date: 20140305
  Receipt Date: 20140305
  Transmission Date: 20141002
  Serious: Yes (Other)
  Sender: FDA-Public Use
  Company Number: 2014HINLIT0169

PATIENT
  Age: 46 Year
  Sex: Female

DRUGS (7)
  1. LEVETIRACETAM (LEVETIRACETAM) (UNKNOWN) [Suspect]
     Indication: CONVULSION
     Route: 048
     Dates: start: 2001
  2. LAMOTRIGINE (LAMOTRIGINE) [Suspect]
     Indication: CONVULSION
  3. CARBAMAZEPINE (CARBAMAZEPINE) [Concomitant]
  4. VALPROATE (VALPROATE) [Concomitant]
  5. TOPIRAMATE (TOPIRAMATE) [Concomitant]
  6. GABAPENTIN (GABAPENTIN) [Concomitant]
  7. CLOBAZAM (CLOBAZAM) [Concomitant]

REACTIONS (1)
  - Pathological gambling [None]
